FAERS Safety Report 8918930 (Version 2)
Quarter: 2012Q4

REPORT INFORMATION
  Report Type: 
  Country: GR (occurrence: GR)
  Receive Date: 20121121
  Receipt Date: 20121203
  Transmission Date: 20130627
  Serious: Yes (Other)
  Sender: FDA-Public Use
  Company Number: GR-JNJFOC-20121107191

PATIENT

DRUGS (10)
  1. DOXORUBICIN [Suspect]
     Indication: NEOPLASM
     Route: 042
  2. DOXORUBICIN [Suspect]
     Indication: NEOPLASM
     Route: 065
  3. MITOMYCIN C [Suspect]
     Indication: NEOPLASM
     Route: 042
  4. CISPLATIN [Suspect]
     Indication: NEOPLASM
     Route: 042
  5. HEPARIN [Concomitant]
     Route: 058
  6. ONDANSETRON [Concomitant]
     Indication: ANTIEMETIC SUPPORTIVE CARE
     Route: 065
  7. RANITIDINE [Concomitant]
     Indication: ANTIEMETIC SUPPORTIVE CARE
     Route: 065
  8. HEPARIN [Concomitant]
     Route: 040
  9. HEPARIN [Concomitant]
     Route: 040
  10. GENERAL ANESTHETIC [Concomitant]
     Indication: GENERAL ANAESTHESIA
     Route: 065

REACTIONS (1)
  - Atrial fibrillation [Unknown]
